FAERS Safety Report 9543428 (Version 2)
Quarter: 2013Q4

REPORT INFORMATION
  Report Type: Spontaneous
  Country: US (occurrence: US)
  Receive Date: 20130923
  Receipt Date: 20131018
  Transmission Date: 20140711
  Serious: No
  Sender: FDA-Public Use
  Company Number: US-PFIZER INC-2013271549

PATIENT
  Age: 42 Year
  Sex: Male

DRUGS (3)
  1. LIPITOR [Suspect]
     Indication: LIPIDS INCREASED
     Dosage: 20 MG, DAILY
     Route: 048
     Dates: start: 1998, end: 199910
  2. ZOCOR [Suspect]
     Indication: LIPIDS INCREASED
     Dosage: 20 MG, DAILY
     Route: 048
     Dates: start: 199911, end: 20041025
  3. CRESTOR [Suspect]
     Indication: LIPIDS INCREASED
     Dosage: 10 MG, DAILY
     Route: 048
     Dates: start: 20041026, end: 20041119

REACTIONS (2)
  - Myalgia [Recovered/Resolved]
  - Feeling abnormal [Recovered/Resolved]
